FAERS Safety Report 5702995-2 (Version None)
Quarter: 2008Q2

REPORT INFORMATION
  Report Type: 
  Country: None (occurrence: None)
  Receive Date: 20080408
  Receipt Date: 20080331
  Transmission Date: 20081010
  Serious: Yes (Other)
  Sender: FDA-Public Use
  Company Number: 08042451

PATIENT
  Sex: Male

DRUGS (1)
  1. CLOTRIMAZOLE AND BETAMETHASONE DIPROPIONATE CREAM USP 15G [Suspect]
     Indication: TINEA CRURIS
     Dosage: TOPICAL
     Route: 061

REACTIONS (2)
  - SCAR [None]
  - SKIN STRIAE [None]
